FAERS Safety Report 9656011 (Version 2)
Quarter: 2013Q4

REPORT INFORMATION
  Report Type: Spontaneous
  Country: DE (occurrence: DE)
  Receive Date: 20131030
  Receipt Date: 20131030
  Transmission Date: 20140711
  Serious: Yes (Death, Other)
  Sender: FDA-Public Use
  Company Number: DE-JNJFOC-20130804743

PATIENT
  Sex: Male
  Weight: 71 kg

DRUGS (4)
  1. ZYTIGA [Suspect]
     Indication: PROSTATE CANCER METASTATIC
     Route: 048
     Dates: start: 20130619, end: 20130809
  2. PREDNISONE [Concomitant]
     Dosage: 10 MG 2X5
     Route: 065
  3. ZOMETA [Concomitant]
     Dosage: 10 MG 2X5
     Route: 065
     Dates: start: 20130730
  4. TAMSULOSIN [Concomitant]
     Dosage: 10 MG 2X5
     Route: 065

REACTIONS (2)
  - Prostate cancer [Fatal]
  - Metastases to liver [Unknown]
